FAERS Safety Report 6888311-1 (Version None)
Quarter: 2010Q3

REPORT INFORMATION
  Report Type: 
  Country: None (occurrence: None)
  Receive Date: 20100730
  Receipt Date: 20100723
  Transmission Date: 20110219
  Serious: Yes (Hospitalization)
  Sender: FDA-Public Use
  Company Number: DE-CEPHALON-2010003999

PATIENT
  Sex: Male
  Weight: 71 kg

DRUGS (6)
  1. TREANDA [Suspect]
     Route: 042
     Dates: start: 20100624, end: 20100722
  2. RITUXIMAB [Suspect]
     Route: 042
     Dates: start: 20100623, end: 20100722
  3. FLUDARABINE [Suspect]
     Route: 042
  4. CYCLOPHOSPHAMIDE [Suspect]
     Route: 042
  5. METOCLOPRAMIDE [Concomitant]
     Dates: start: 20100714
  6. ACETYLSALICYLIC ACID SRT [Concomitant]
     Dates: start: 19900101

REACTIONS (6)
  - ANAPHYLACTIC SHOCK [None]
  - BODY TEMPERATURE INCREASED [None]
  - CHILLS [None]
  - DEPRESSED LEVEL OF CONSCIOUSNESS [None]
  - HYPERSENSITIVITY [None]
  - NAUSEA [None]
